FAERS Safety Report 9970380 (Version 1)
Quarter: 2014Q1

REPORT INFORMATION
  Report Type: Report from Study
  Country: US (occurrence: US)
  Receive Date: 20140306
  Receipt Date: 20140306
  Transmission Date: 20141002
  Serious: No
  Sender: FDA-Public Use
  Company Number: US-ABBVIE-13P-163-1150531-00

PATIENT
  Age: 70 Year
  Sex: Female
  Weight: 66.74 kg

DRUGS (11)
  1. HUMIRA [Suspect]
     Indication: RHEUMATOID ARTHRITIS
     Dates: start: 201302
  2. METHOTREXATE [Concomitant]
     Indication: RHEUMATOID ARTHRITIS
  3. FOLIC ACID [Concomitant]
     Indication: VITAMIN SUPPLEMENTATION
  4. LORTAB [Concomitant]
     Indication: SCIATICA
  5. GABAPENTIN [Concomitant]
     Indication: SCIATICA
  6. PREDNISONE [Concomitant]
     Indication: RHEUMATOID ARTHRITIS
  7. AMLODIPINE [Concomitant]
     Indication: HYPERTENSION
  8. ZYRTEC [Concomitant]
     Indication: HYPERSENSITIVITY
  9. VESICARE [Concomitant]
     Indication: BLADDER DISORDER
  10. MULTIVITAMINS [Concomitant]
     Indication: VITAMIN SUPPLEMENTATION
  11. FOSAMAX [Concomitant]
     Indication: OSTEOPOROSIS

REACTIONS (4)
  - Incorrect dose administered [Not Recovered/Not Resolved]
  - Device malfunction [Not Recovered/Not Resolved]
  - Injection site pain [Not Recovered/Not Resolved]
  - Injection site pain [Recovered/Resolved]
